FAERS Safety Report 9241490 (Version 1)
Quarter: 2013Q1

REPORT INFORMATION
  Report Type: Spontaneous
  Country: US (occurrence: None)
  Receive Date: 20121121
  Receipt Date: 20121121
  Transmission Date: 20140127
  Serious: Yes (Other)
  Sender: FDA-Public Use
  Company Number: 1457446

PATIENT
  Age: 56 Year
  Sex: Female

DRUGS (10)
  1. DOCETAXEL [Suspect]
     Indication: BREAST CANCER
     Dosage: 20SEP2012 12:14:34 75 MG/M2 X 2 DOSES, NOT REPORTED (UNKNOWN)
     Dates: start: 20120920
  2. (CARBOPLATIN) [Suspect]
     Indication: BREAST CANCER
     Dosage: NOT REPORTED , NOT REPORTED, UNKNOWN
  3. (HERCEPTIN) [Concomitant]
  4. TYLENOL [Concomitant]
  5. (WELLBUTRIN ) [Concomitant]
  6. (COMPAZINE) [Concomitant]
  7. (ZOFRAN) [Concomitant]
  8. (DEXAMETHASONE) [Concomitant]
  9. (IBU) [Concomitant]
  10. (PERCOCET) [Concomitant]

REACTIONS (2)
  - Abdominal pain [None]
  - Diarrhoea [None]
